FAERS Safety Report 10663723 (Version 1)
Quarter: 2014Q4

REPORT INFORMATION
  Report Type: Spontaneous
  Country: US (occurrence: US)
  Receive Date: 20141219
  Receipt Date: 20141219
  Transmission Date: 20150529
  Serious: No
  Sender: FDA-Public Use
  Company Number: US-009507513-1412USA006610

PATIENT
  Age: 26 Year
  Sex: Female

DRUGS (3)
  1. RALTEGRAVIR POTASSIUM [Suspect]
     Active Substance: RALTEGRAVIR POTASSIUM
     Dosage: COURSE NUMBER 1; TOTAL DAILY DOSE 800.
     Route: 048
  2. ETRAVIRINE [Suspect]
     Active Substance: ETRAVIRINE
     Dosage: COURSE NUMBER 1; TOTAL DAILY DOSE 400.
  3. EMTRICITABINE (+) TENOFOVIR DISOPROXIL FUMARATE [Suspect]
     Active Substance: EMTRICITABINE\TENOFOVIR DISOPROXIL
     Dosage: COURSE NUMBER 1; TOTAL DAILY DOSE 1.
     Route: 048

REACTIONS (1)
  - Exposure during pregnancy [Unknown]
